FAERS Safety Report 22599621 (Version 1)
Quarter: 2023Q2

REPORT INFORMATION
  Report Type: Spontaneous
  Country: CO (occurrence: CO)
  Receive Date: 20230614
  Receipt Date: 20230614
  Transmission Date: 20230722
  Serious: Yes (Other)
  Sender: FDA-Public Use
  Company Number: CO-PFIZER INC-202300215289

PATIENT
  Age: 10 Year
  Sex: Male
  Weight: 29.1 kg

DRUGS (3)
  1. GENOTROPIN [Suspect]
     Active Substance: SOMATROPIN
     Indication: Bone development abnormal
     Dosage: 1.2 MG, DAILY (180 DAYS)
  2. GENOTROPIN [Suspect]
     Active Substance: SOMATROPIN
     Indication: Growth disorder
  3. GENOTROPIN [Suspect]
     Active Substance: SOMATROPIN
     Indication: Short stature

REACTIONS (4)
  - Arrhythmia [Unknown]
  - Poor quality device used [Unknown]
  - Device calibration failure [Unknown]
  - Off label use [Unknown]

NARRATIVE: CASE EVENT DATE: 20230413
